FAERS Safety Report 18972434 (Version 1)
Quarter: 2021Q1

REPORT INFORMATION
  Report Type: Spontaneous
  Country: US (occurrence: US)
  Receive Date: 20210305
  Receipt Date: 20210305
  Transmission Date: 20210420
  Serious: Yes (Other)
  Sender: FDA-Public Use
  Company Number: US-SUN PHARMACEUTICAL INDUSTRIES LTD-2021R1-284361

PATIENT
  Age: 35 Year
  Sex: Female

DRUGS (3)
  1. DOXORUBICIN [Suspect]
     Active Substance: DOXORUBICIN
     Indication: CHEMOTHERAPY
     Dosage: UNK(4 CYCLES)
     Route: 065
  2. IFOSFAMIDE. [Suspect]
     Active Substance: IFOSFAMIDE
     Indication: CHEMOTHERAPY
     Dosage: UNK(4 CYCLES)
     Route: 065
  3. MESNA. [Suspect]
     Active Substance: MESNA
     Indication: CHEMOTHERAPY
     Dosage: UNK(4 CYCLES)
     Route: 065

REACTIONS (2)
  - Drug ineffective [Unknown]
  - Hepatic enzyme increased [Unknown]
